FAERS Safety Report 24596952 (Version 2)
Quarter: 2025Q1

REPORT INFORMATION
  Report Type: Report from Study
  Country: US (occurrence: US)
  Receive Date: 20241110
  Receipt Date: 20250312
  Transmission Date: 20250409
  Serious: No
  Sender: SANOFI AVENTIS
  Company Number: US-SA-2024SA309415

PATIENT
  Age: 67 Year
  Sex: Female

DRUGS (4)
  1. DUPILUMAB [Suspect]
     Active Substance: DUPILUMAB
     Indication: Nasal polyps
     Dosage: 300 MG, QOW
     Route: 058
     Dates: start: 20231114, end: 202502
  2. CYCLOBENZAPRINE [Concomitant]
     Active Substance: CYCLOBENZAPRINE
  3. LISINOPRIL [Concomitant]
     Active Substance: LISINOPRIL
  4. TOPIRAMATE [Concomitant]
     Active Substance: TOPIRAMATE

REACTIONS (6)
  - Sinus disorder [Unknown]
  - Sneezing [Unknown]
  - Product dose omission issue [Unknown]
  - Influenza [Unknown]
  - Nasal congestion [Unknown]
  - Pain [Unknown]

NARRATIVE: CASE EVENT DATE: 20241001
